FAERS Safety Report 5743031-1 (Version None)
Quarter: 2008Q2

REPORT INFORMATION
  Report Type: 
  Country: None (occurrence: None)
  Receive Date: 20080519
  Receipt Date: 20080509
  Transmission Date: 20081010
  Serious: Yes (Hospitalization)
  Sender: FDA-Public Use
  Company Number: FR-BRISTOL-MYERS SQUIBB COMPANY-13626833

PATIENT
  Age: 49 Year
  Sex: Male
  Weight: 73 kg

DRUGS (5)
  1. CETUXIMAB [Suspect]
     Indication: COLON CANCER
     Route: 042
     Dates: start: 20060531, end: 20060913
  2. OXALIPLATIN [Suspect]
     Indication: COLON CANCER
     Route: 042
     Dates: start: 20060531, end: 20060913
  3. FLUOROURACIL [Suspect]
     Indication: COLON CANCER
     Route: 042
     Dates: start: 20060531, end: 20060913
  4. FOLINIC ACID [Suspect]
     Indication: COLON CANCER
     Route: 042
     Dates: start: 20060531, end: 20060913
  5. PREDNISONE TAB [Concomitant]

REACTIONS (7)
  - ABSCESS LIMB [None]
  - CHILLS [None]
  - INFECTION [None]
  - MUSCULOSKELETAL PAIN [None]
  - POLLAKIURIA [None]
  - PURPURA [None]
  - PYREXIA [None]
